APPROVED DRUG PRODUCT: CYCLOPHOSPHAMIDE
Active Ingredient: CYCLOPHOSPHAMIDE
Strength: 25MG
Dosage Form/Route: CAPSULE;ORAL
Application: A211552 | Product #001 | TE Code: AB
Applicant: ZYDUS LIFESCIENCES LTD
Approved: Dec 13, 2023 | RLD: No | RS: No | Type: RX